FAERS Safety Report 25736760 (Version 1)
Quarter: 2025Q3

REPORT INFORMATION
  Report Type: Report from Study
  Country: US (occurrence: US)
  Receive Date: 20250828
  Receipt Date: 20250828
  Transmission Date: 20251020
  Serious: Yes (Hospitalization, Other)
  Sender: ALEXION PHARMACEUTICALS
  Company Number: US-AstraZeneca-CH-00937357A

PATIENT
  Sex: Female

DRUGS (1)
  1. EPLONTERSEN SODIUM [Suspect]
     Active Substance: EPLONTERSEN SODIUM

REACTIONS (7)
  - Haematochezia [Unknown]
  - Haemorrhage [Unknown]
  - Hypotension [Unknown]
  - Chemical burn [Unknown]
  - Pruritus [Unknown]
  - Ligament sprain [Unknown]
  - Large intestine polyp [Unknown]
